FAERS Safety Report 7169505-7 (Version None)
Quarter: 2010Q4

REPORT INFORMATION
  Report Type: 
  Country: None (occurrence: None)
  Receive Date: 20101217
  Receipt Date: 20101207
  Transmission Date: 20110411
  Serious: Yes (Hospitalization, Other)
  Sender: FDA-Public Use
  Company Number: US-PFIZER INC-2010122484

PATIENT
  Sex: Female
  Weight: 97.522 kg

DRUGS (18)
  1. CELEBREX [Suspect]
     Indication: RHEUMATOID ARTHRITIS
     Dosage: UNK
     Route: 048
     Dates: start: 20020101, end: 20020101
  2. CELEBREX [Suspect]
     Indication: PAIN
  3. COZAAR [Suspect]
     Indication: HYPERTENSION
     Dosage: UNK
     Dates: start: 20090101, end: 20100101
  4. COZAAR [Suspect]
     Dates: start: 20090101, end: 20100101
  5. LOSARTAN POTASSIUM [Suspect]
     Indication: HYPERTENSION
     Dosage: 50 MG, 1X/DAY
     Route: 048
     Dates: start: 20100708
  6. VIOXX [Suspect]
     Indication: RHEUMATOID ARTHRITIS
     Dosage: UNK
  7. VIOXX [Suspect]
     Indication: PAIN
     Route: 048
  8. NEXIUM [Concomitant]
     Dosage: 20 MG, UNK
  9. NEXIUM [Concomitant]
  10. TOPROL-XL [Concomitant]
     Dosage: UNK
  11. TOPROL-XL [Concomitant]
  12. FOLIC ACID [Concomitant]
     Dosage: UNK
  13. NAPROSYN [Concomitant]
     Dosage: 500 MG, 2X/DAY
  14. NAPROSYN [Concomitant]
     Dosage: FREQUENCY: 2X/DAY,
  15. VOLTAREN [Concomitant]
     Dosage: UNK
  16. DIAZEPAM [Concomitant]
     Dosage: UNK
  17. LOSARTAN [Concomitant]
  18. ETANERCEPT [Concomitant]
     Dosage: FREQUENCY: TWICE WEEKLY,

REACTIONS (7)
  - ASTHENIA [None]
  - ATRIAL FIBRILLATION [None]
  - DRUG HYPERSENSITIVITY [None]
  - PALPITATIONS [None]
  - PSYCHOMOTOR HYPERACTIVITY [None]
  - SINUS TACHYCARDIA [None]
  - TREMOR [None]
